FAERS Safety Report 11103755 (Version 2)
Quarter: 2015Q2

REPORT INFORMATION
  Report Type: Spontaneous
  Country: DE (occurrence: None)
  Receive Date: 20150507
  Receipt Date: 20150604
  Transmission Date: 20150821
  Serious: Yes (Other)
  Sender: FDA-Public Use
  Company Number: 8022560

PATIENT
  Sex: Male

DRUGS (1)
  1. EUTHYROX (LEVOTHYROXINE SODIUM) (TABLET) (LEVOTHYROXINE SODIUM) ,170465 [Suspect]
     Active Substance: LEVOTHYROXINE SODIUM
     Indication: PRODUCT USED FOR UNKNOWN INDICATION
     Dosage: ONCE 10 TABLETS (88 MCG)
     Route: 048
     Dates: start: 20150413, end: 20150413

REACTIONS (3)
  - Vomiting [None]
  - Overdose [None]
  - Intentional product misuse [None]

NARRATIVE: CASE EVENT DATE: 20150413
